FAERS Safety Report 24863105 (Version 3)
Quarter: 2025Q3

REPORT INFORMATION
  Report Type: Spontaneous
  Country: CA (occurrence: CA)
  Receive Date: 20250120
  Receipt Date: 20250721
  Transmission Date: 20251020
  Serious: Yes (Death)
  Sender: ALCON
  Company Number: CA-ALCON LABORATORIES-ALC2025CA000626

PATIENT
  Age: 43 Year
  Sex: Female
  Weight: 68 kg

DRUGS (453)
  1. ACETAMINOPHEN [Suspect]
     Active Substance: ACETAMINOPHEN
     Indication: Product used for unknown indication
     Route: 065
  2. ACETAMINOPHEN [Suspect]
     Active Substance: ACETAMINOPHEN
     Indication: Rheumatoid arthritis
     Route: 065
  3. ACETAMINOPHEN [Suspect]
     Active Substance: ACETAMINOPHEN
     Route: 065
  4. ACETAMINOPHEN [Suspect]
     Active Substance: ACETAMINOPHEN
     Route: 065
  5. ACTEMRA [Suspect]
     Active Substance: TOCILIZUMAB
     Indication: Rheumatoid arthritis
     Route: 065
  6. ACTEMRA [Suspect]
     Active Substance: TOCILIZUMAB
     Route: 065
  7. ACTEMRA [Suspect]
     Active Substance: TOCILIZUMAB
     Route: 065
  8. ACTEMRA [Suspect]
     Active Substance: TOCILIZUMAB
     Route: 058
  9. ACTEMRA [Suspect]
     Active Substance: TOCILIZUMAB
     Route: 058
  10. ACTEMRA [Suspect]
     Active Substance: TOCILIZUMAB
     Route: 058
  11. ACTEMRA [Suspect]
     Active Substance: TOCILIZUMAB
     Route: 058
  12. ACTEMRA [Suspect]
     Active Substance: TOCILIZUMAB
     Route: 058
  13. ACTEMRA [Suspect]
     Active Substance: TOCILIZUMAB
     Route: 058
  14. ACTEMRA [Suspect]
     Active Substance: TOCILIZUMAB
     Route: 016
  15. ACTEMRA [Suspect]
     Active Substance: TOCILIZUMAB
     Route: 016
  16. ACTEMRA [Suspect]
     Active Substance: TOCILIZUMAB
     Route: 016
  17. ACTEMRA [Suspect]
     Active Substance: TOCILIZUMAB
     Route: 040
  18. ACTEMRA [Suspect]
     Active Substance: TOCILIZUMAB
     Route: 042
  19. ACTEMRA [Suspect]
     Active Substance: TOCILIZUMAB
     Route: 042
  20. ACTEMRA [Suspect]
     Active Substance: TOCILIZUMAB
     Route: 058
  21. ACTEMRA [Suspect]
     Active Substance: TOCILIZUMAB
     Route: 058
  22. ACTEMRA [Suspect]
     Active Substance: TOCILIZUMAB
     Route: 058
  23. AIMOVIG [Suspect]
     Active Substance: ERENUMAB-AOOE
     Indication: Product used for unknown indication
     Route: 065
  24. AIMOVIG [Suspect]
     Active Substance: ERENUMAB-AOOE
     Route: 065
  25. AIMOVIG [Suspect]
     Active Substance: ERENUMAB-AOOE
     Route: 065
  26. ALENDRONIC ACID [Suspect]
     Active Substance: ALENDRONIC ACID
     Indication: Rheumatoid arthritis
     Route: 065
  27. ALENDRONIC ACID [Suspect]
     Active Substance: ALENDRONIC ACID
     Route: 065
  28. ALENDRONIC ACID [Suspect]
     Active Substance: ALENDRONIC ACID
     Route: 065
  29. ALENDRONIC ACID [Suspect]
     Active Substance: ALENDRONIC ACID
     Indication: Product used for unknown indication
     Route: 016
  30. ALENDRONIC ACID [Suspect]
     Active Substance: ALENDRONIC ACID
     Route: 016
  31. ALENDRONIC ACID [Suspect]
     Active Substance: ALENDRONIC ACID
     Route: 016
  32. ALENDRONIC ACID [Suspect]
     Active Substance: ALENDRONIC ACID
     Route: 016
  33. ALENDRONIC ACID [Suspect]
     Active Substance: ALENDRONIC ACID
     Route: 016
  34. ALFACALCIDOL [Suspect]
     Active Substance: ALFACALCIDOL
     Indication: Product used for unknown indication
     Route: 065
  35. ALFACALCIDOL [Suspect]
     Active Substance: ALFACALCIDOL
     Route: 065
  36. ALFACALCIDOL [Suspect]
     Active Substance: ALFACALCIDOL
     Route: 065
  37. PREDNISONE [Suspect]
     Active Substance: PREDNISONE
     Indication: Rheumatoid arthritis
     Route: 065
  38. PREDNISONE [Suspect]
     Active Substance: PREDNISONE
     Route: 065
  39. PREDNISONE [Suspect]
     Active Substance: PREDNISONE
     Route: 065
  40. ATOMOXETINE [Suspect]
     Active Substance: ATOMOXETINE
     Indication: Product used for unknown indication
     Route: 065
  41. ATOMOXETINE [Suspect]
     Active Substance: ATOMOXETINE
     Route: 065
  42. ATOMOXETINE HYDROCHLORIDE [Suspect]
     Active Substance: ATOMOXETINE HYDROCHLORIDE
     Indication: Product used for unknown indication
     Route: 065
  43. AZATHIOPRINE [Suspect]
     Active Substance: AZATHIOPRINE
     Route: 016
  44. AZATHIOPRINE [Suspect]
     Active Substance: AZATHIOPRINE
     Route: 016
  45. AZATHIOPRINE [Suspect]
     Active Substance: AZATHIOPRINE
     Route: 016
  46. AZATHIOPRINE [Suspect]
     Active Substance: AZATHIOPRINE
     Indication: Rheumatoid arthritis
     Route: 048
  47. AZATHIOPRINE [Suspect]
     Active Substance: AZATHIOPRINE
     Route: 048
  48. AZATHIOPRINE [Suspect]
     Active Substance: AZATHIOPRINE
     Route: 048
  49. AZATHIOPRINE [Suspect]
     Active Substance: AZATHIOPRINE
     Indication: Product used for unknown indication
     Route: 065
  50. AZATHIOPRINE [Suspect]
     Active Substance: AZATHIOPRINE
     Route: 065
  51. AZATHIOPRINE [Suspect]
     Active Substance: AZATHIOPRINE
     Route: 065
  52. BERINERT [Suspect]
     Active Substance: HUMAN C1-ESTERASE INHIBITOR
     Indication: Product used for unknown indication
     Route: 065
  53. BERINERT [Suspect]
     Active Substance: HUMAN C1-ESTERASE INHIBITOR
     Route: 065
  54. BERINERT [Suspect]
     Active Substance: HUMAN C1-ESTERASE INHIBITOR
     Route: 065
  55. BETAMETHASONE [Suspect]
     Active Substance: BETAMETHASONE
     Indication: Product used for unknown indication
     Route: 065
  56. BETAMETHASONE [Suspect]
     Active Substance: BETAMETHASONE
     Route: 065
  57. BETAMETHASONE [Suspect]
     Active Substance: BETAMETHASONE
     Route: 065
  58. BOTULINUM TOXIN TYPE A [Suspect]
     Active Substance: BOTULINUM TOXIN TYPE A
     Indication: Product used for unknown indication
     Route: 030
  59. BOTULINUM TOXIN TYPE A [Suspect]
     Active Substance: BOTULINUM TOXIN TYPE A
     Route: 030
  60. BOTULINUM TOXIN TYPE A [Suspect]
     Active Substance: BOTULINUM TOXIN TYPE A
     Route: 030
  61. BUPIVACAINE [Suspect]
     Active Substance: BUPIVACAINE
     Indication: Product used for unknown indication
     Route: 065
  62. BUPIVACAINE HYDROCHLORIDE [Suspect]
     Active Substance: BUPIVACAINE HYDROCHLORIDE
     Indication: Rheumatoid arthritis
     Route: 065
  63. BUPIVACAINE HYDROCHLORIDE [Suspect]
     Active Substance: BUPIVACAINE HYDROCHLORIDE
     Route: 065
  64. BUPIVACAINE HYDROCHLORIDE [Suspect]
     Active Substance: BUPIVACAINE HYDROCHLORIDE
     Route: 065
  65. BUPRENORPHINE [Suspect]
     Active Substance: BUPRENORPHINE
     Indication: Product used for unknown indication
     Route: 065
  66. BUPRENORPHINE [Suspect]
     Active Substance: BUPRENORPHINE
     Route: 065
  67. BUPRENORPHINE [Suspect]
     Active Substance: BUPRENORPHINE
     Route: 065
  68. CALCIUM [Suspect]
     Active Substance: CALCIUM
     Indication: Product used for unknown indication
     Route: 065
  69. CALCIUM [Suspect]
     Active Substance: CALCIUM
     Route: 065
  70. CALCIUM [Suspect]
     Active Substance: CALCIUM
     Route: 065
  71. CALCIUM GLUBIONATE [Suspect]
     Active Substance: CALCIUM GLUBIONATE
     Indication: Rheumatoid arthritis
     Route: 065
  72. CALCIUM GLUBIONATE [Suspect]
     Active Substance: CALCIUM GLUBIONATE
     Route: 065
  73. CALCIUM GLUBIONATE [Suspect]
     Active Substance: CALCIUM GLUBIONATE
     Route: 065
  74. CANDESARTAN [Suspect]
     Active Substance: CANDESARTAN
     Indication: Migraine
     Route: 065
  75. CANDESARTAN [Suspect]
     Active Substance: CANDESARTAN
     Indication: Rheumatoid arthritis
     Route: 065
  76. CANDESARTAN [Suspect]
     Active Substance: CANDESARTAN
     Route: 065
  77. CANDESARTAN [Suspect]
     Active Substance: CANDESARTAN
     Route: 065
  78. CELECOXIB [Suspect]
     Active Substance: CELECOXIB
     Route: 065
  79. CELECOXIB [Suspect]
     Active Substance: CELECOXIB
     Route: 065
  80. CELECOXIB [Suspect]
     Active Substance: CELECOXIB
     Route: 065
  81. CELECOXIB [Suspect]
     Active Substance: CELECOXIB
     Route: 065
  82. CELECOXIB [Suspect]
     Active Substance: CELECOXIB
     Route: 065
  83. CELECOXIB [Suspect]
     Active Substance: CELECOXIB
     Route: 065
  84. CELECOXIB [Suspect]
     Active Substance: CELECOXIB
     Indication: Rheumatoid arthritis
     Route: 065
  85. CELECOXIB [Suspect]
     Active Substance: CELECOXIB
     Route: 065
  86. CELECOXIB [Suspect]
     Active Substance: CELECOXIB
     Indication: Rheumatoid arthritis
     Route: 065
  87. CELECOXIB [Suspect]
     Active Substance: CELECOXIB
     Indication: Product used for unknown indication
     Route: 065
  88. CELECOXIB [Suspect]
     Active Substance: CELECOXIB
     Route: 065
  89. CETIRIZINE [Suspect]
     Active Substance: CETIRIZINE HYDROCHLORIDE
     Indication: Rheumatoid arthritis
     Route: 048
  90. CETIRIZINE [Suspect]
     Active Substance: CETIRIZINE HYDROCHLORIDE
     Route: 048
  91. CETIRIZINE [Suspect]
     Active Substance: CETIRIZINE HYDROCHLORIDE
     Route: 048
  92. CETIRIZINE [Suspect]
     Active Substance: CETIRIZINE HYDROCHLORIDE
     Route: 048
  93. CETIRIZINE [Suspect]
     Active Substance: CETIRIZINE HYDROCHLORIDE
     Route: 048
  94. CHLORHEXIDINE [Suspect]
     Active Substance: CHLORHEXIDINE
     Route: 002
  95. CHLORHEXIDINE [Suspect]
     Active Substance: CHLORHEXIDINE
     Route: 002
  96. CHLORHEXIDINE [Suspect]
     Active Substance: CHLORHEXIDINE
     Indication: Product used for unknown indication
     Route: 061
  97. CHLORHEXIDINE [Suspect]
     Active Substance: CHLORHEXIDINE
     Route: 061
  98. CHLORHEXIDINE [Suspect]
     Active Substance: CHLORHEXIDINE
     Route: 061
  99. CHOLECALCIFEROL [Suspect]
     Active Substance: CHOLECALCIFEROL
     Indication: Product used for unknown indication
     Route: 016
  100. CHOLECALCIFEROL [Suspect]
     Active Substance: CHOLECALCIFEROL
     Route: 016
  101. CHOLECALCIFEROL [Suspect]
     Active Substance: CHOLECALCIFEROL
     Route: 016
  102. CIMZIA [Suspect]
     Active Substance: CERTOLIZUMAB PEGOL
     Route: 065
  103. CIMZIA [Suspect]
     Active Substance: CERTOLIZUMAB PEGOL
     Route: 065
  104. CIMZIA [Suspect]
     Active Substance: CERTOLIZUMAB PEGOL
     Route: 065
  105. CIMZIA [Suspect]
     Active Substance: CERTOLIZUMAB PEGOL
     Indication: Product used for unknown indication
     Route: 058
  106. CIMZIA [Suspect]
     Active Substance: CERTOLIZUMAB PEGOL
     Indication: Psoriasis
     Route: 058
  107. CIMZIA [Suspect]
     Active Substance: CERTOLIZUMAB PEGOL
     Route: 058
  108. CIMZIA [Suspect]
     Active Substance: CERTOLIZUMAB PEGOL
     Route: 058
  109. CIMZIA [Suspect]
     Active Substance: CERTOLIZUMAB PEGOL
     Route: 058
  110. CIMZIA [Suspect]
     Active Substance: CERTOLIZUMAB PEGOL
     Route: 058
  111. CIMZIA [Suspect]
     Active Substance: CERTOLIZUMAB PEGOL
     Route: 058
  112. CIMZIA [Suspect]
     Active Substance: CERTOLIZUMAB PEGOL
     Route: 058
  113. CIMZIA [Suspect]
     Active Substance: CERTOLIZUMAB PEGOL
     Route: 058
  114. CIMZIA [Suspect]
     Active Substance: CERTOLIZUMAB PEGOL
     Indication: Rheumatoid arthritis
     Route: 057
  115. CIMZIA [Suspect]
     Active Substance: CERTOLIZUMAB PEGOL
     Route: 057
  116. CIMZIA [Suspect]
     Active Substance: CERTOLIZUMAB PEGOL
     Route: 058
  117. CIMZIA [Suspect]
     Active Substance: CERTOLIZUMAB PEGOL
     Route: 058
  118. CIMZIA [Suspect]
     Active Substance: CERTOLIZUMAB PEGOL
     Route: 058
  119. CIMZIA [Suspect]
     Active Substance: CERTOLIZUMAB PEGOL
     Route: 058
  120. CIMZIA [Suspect]
     Active Substance: CERTOLIZUMAB PEGOL
     Route: 058
  121. CIMZIA [Suspect]
     Active Substance: CERTOLIZUMAB PEGOL
     Route: 065
  122. CORTISONE [Suspect]
     Active Substance: CORTISONE
     Route: 065
  123. CORTISONE [Suspect]
     Active Substance: CORTISONE
     Indication: Rheumatoid arthritis
     Route: 065
  124. CORTISONE [Suspect]
     Active Substance: CORTISONE
     Route: 065
  125. CORTISONE ACETATE [Suspect]
     Active Substance: CORTISONE ACETATE
     Indication: Rheumatoid arthritis
     Route: 065
  126. CORTISONE ACETATE [Suspect]
     Active Substance: CORTISONE ACETATE
     Route: 065
  127. CORTISONE ACETATE [Suspect]
     Active Substance: CORTISONE ACETATE
     Route: 065
  128. COSENTYX [Suspect]
     Active Substance: SECUKINUMAB
     Indication: Product used for unknown indication
     Route: 065
  129. COSENTYX [Suspect]
     Active Substance: SECUKINUMAB
     Route: 065
  130. COSENTYX [Suspect]
     Active Substance: SECUKINUMAB
     Route: 065
  131. CYCLOBENZAPRINE [Suspect]
     Active Substance: CYCLOBENZAPRINE
     Indication: Product used for unknown indication
     Route: 065
  132. CYCLOBENZAPRINE [Suspect]
     Active Substance: CYCLOBENZAPRINE
     Route: 065
  133. CYCLOBENZAPRINE [Suspect]
     Active Substance: CYCLOBENZAPRINE
     Route: 065
  134. DESOXIMETASONE [Suspect]
     Active Substance: DESOXIMETASONE
     Indication: Rheumatoid arthritis
     Route: 048
  135. DESOXIMETASONE [Suspect]
     Active Substance: DESOXIMETASONE
     Route: 048
  136. DESOXIMETASONE [Suspect]
     Active Substance: DESOXIMETASONE
     Route: 065
  137. DESOXIMETASONE [Suspect]
     Active Substance: DESOXIMETASONE
     Route: 065
  138. DESOXIMETASONE [Suspect]
     Active Substance: DESOXIMETASONE
     Route: 065
  139. DICLOFENAC [Suspect]
     Active Substance: DICLOFENAC
     Route: 031
  140. DICLOFENAC [Suspect]
     Active Substance: DICLOFENAC
     Route: 031
  141. DICLOFENAC [Suspect]
     Active Substance: DICLOFENAC
     Route: 065
  142. DICLOFENAC [Suspect]
     Active Substance: DICLOFENAC
     Route: 065
  143. DICLOFENAC [Suspect]
     Active Substance: DICLOFENAC
     Route: 065
  144. DICLOFENAC [Suspect]
     Active Substance: DICLOFENAC
     Indication: Product used for unknown indication
     Route: 031
  145. DICLOFENAC [Suspect]
     Active Substance: DICLOFENAC
     Route: 031
  146. DICLOFENAC [Suspect]
     Active Substance: DICLOFENAC
     Route: 031
  147. DICLOFENAC [Suspect]
     Active Substance: DICLOFENAC
     Route: 065
  148. DICLOFENAC SODIUM [Suspect]
     Active Substance: DICLOFENAC SODIUM
     Route: 065
  149. DICLOFENAC SODIUM [Suspect]
     Active Substance: DICLOFENAC SODIUM
     Indication: Product used for unknown indication
     Route: 031
  150. DOMPERIDONE [Suspect]
     Active Substance: DOMPERIDONE
     Indication: Product used for unknown indication
     Route: 065
  151. DOMPERIDONE [Suspect]
     Active Substance: DOMPERIDONE
     Route: 065
  152. DOMPERIDONE MALEATE [Suspect]
     Active Substance: DOMPERIDONE MALEATE
     Indication: Product used for unknown indication
     Route: 065
  153. DOXYCYCLINE HYCLATE [Suspect]
     Active Substance: DOXYCYCLINE HYCLATE
     Indication: Product used for unknown indication
     Route: 065
  154. DOXYCYCLINE HYCLATE [Suspect]
     Active Substance: DOXYCYCLINE HYCLATE
     Route: 065
  155. DOXYCYCLINE HYCLATE [Suspect]
     Active Substance: DOXYCYCLINE HYCLATE
     Route: 065
  156. ERELZI [Suspect]
     Active Substance: ETANERCEPT-SZZS
     Route: 058
  157. ERELZI [Suspect]
     Active Substance: ETANERCEPT-SZZS
     Route: 058
  158. ERELZI [Suspect]
     Active Substance: ETANERCEPT-SZZS
     Indication: Product used for unknown indication
     Route: 058
  159. ERELZI [Suspect]
     Active Substance: ETANERCEPT-SZZS
     Route: 058
  160. ERENUMAB-AOOE [Suspect]
     Active Substance: ERENUMAB-AOOE
     Indication: Product used for unknown indication
     Route: 065
  161. ERGOCALCIFEROL [Suspect]
     Active Substance: ERGOCALCIFEROL
     Indication: Product used for unknown indication
     Route: 065
  162. ERGOCALCIFEROL [Suspect]
     Active Substance: ERGOCALCIFEROL
     Route: 065
  163. ERGOCALCIFEROL [Suspect]
     Active Substance: ERGOCALCIFEROL
     Route: 065
  164. ETANERCEPT [Suspect]
     Active Substance: ETANERCEPT
     Indication: Rheumatoid arthritis
     Route: 058
  165. ETANERCEPT [Suspect]
     Active Substance: ETANERCEPT
     Route: 058
  166. FETZIMA [Suspect]
     Active Substance: LEVOMILNACIPRAN HYDROCHLORIDE
     Indication: Product used for unknown indication
     Route: 065
  167. FETZIMA [Suspect]
     Active Substance: LEVOMILNACIPRAN HYDROCHLORIDE
     Route: 065
  168. FETZIMA [Suspect]
     Active Substance: LEVOMILNACIPRAN HYDROCHLORIDE
     Route: 065
  169. FINACEA [Suspect]
     Active Substance: AZELAIC ACID
     Indication: Product used for unknown indication
     Route: 065
  170. FINACEA [Suspect]
     Active Substance: AZELAIC ACID
     Route: 065
  171. FINACEA [Suspect]
     Active Substance: AZELAIC ACID
     Route: 065
  172. FLUTICASONE [Suspect]
     Active Substance: FLUTICASONE
     Indication: Product used for unknown indication
     Route: 065
  173. FLUTICASONE [Suspect]
     Active Substance: FLUTICASONE
     Route: 065
  174. FLUTICASONE [Suspect]
     Active Substance: FLUTICASONE
     Route: 065
  175. FOLIC ACID [Suspect]
     Active Substance: FOLIC ACID
     Indication: Rheumatoid arthritis
     Route: 065
  176. FOLIC ACID [Suspect]
     Active Substance: FOLIC ACID
     Route: 065
  177. FOLIC ACID [Suspect]
     Active Substance: FOLIC ACID
     Route: 065
  178. HUMIRA [Suspect]
     Active Substance: ADALIMUMAB
     Route: 065
  179. HUMIRA [Suspect]
     Active Substance: ADALIMUMAB
     Route: 058
  180. HUMIRA [Suspect]
     Active Substance: ADALIMUMAB
     Route: 065
  181. HUMIRA [Suspect]
     Active Substance: ADALIMUMAB
     Indication: Rheumatoid arthritis
     Route: 058
  182. HUMIRA [Suspect]
     Active Substance: ADALIMUMAB
     Route: 058
  183. HUMIRA [Suspect]
     Active Substance: ADALIMUMAB
     Route: 058
  184. HUMIRA [Suspect]
     Active Substance: ADALIMUMAB
     Indication: Product used for unknown indication
     Route: 058
  185. HUMIRA [Suspect]
     Active Substance: ADALIMUMAB
     Route: 058
  186. HUMIRA [Suspect]
     Active Substance: ADALIMUMAB
     Route: 058
  187. HYDROCORTISONE [Suspect]
     Active Substance: HYDROCORTISONE
     Indication: Product used for unknown indication
     Route: 048
  188. HYDROCORTISONE [Suspect]
     Active Substance: HYDROCORTISONE
     Route: 048
  189. HYDROCORTISONE [Suspect]
     Active Substance: HYDROCORTISONE
     Indication: Rheumatoid arthritis
     Route: 065
  190. HYDROCORTISONE [Suspect]
     Active Substance: HYDROCORTISONE
     Route: 065
  191. HYDROCORTISONE [Suspect]
     Active Substance: HYDROCORTISONE
     Route: 048
  192. HYDROCORTISONE [Suspect]
     Active Substance: HYDROCORTISONE
     Route: 048
  193. HYDROCORTISONE ACETATE [Suspect]
     Active Substance: HYDROCORTISONE ACETATE
     Indication: Rheumatoid arthritis
     Route: 065
  194. HYDROCORTISONE ACETATE [Suspect]
     Active Substance: HYDROCORTISONE ACETATE
     Route: 065
  195. HYDROCORTISONE ACETATE [Suspect]
     Active Substance: HYDROCORTISONE ACETATE
     Route: 065
  196. HYDROMORPHONE [Suspect]
     Active Substance: HYDROMORPHONE
     Indication: Product used for unknown indication
     Route: 065
  197. HYDROMORPHONE [Suspect]
     Active Substance: HYDROMORPHONE
     Route: 065
  198. HYDROMORPHONE [Suspect]
     Active Substance: HYDROMORPHONE
     Route: 065
  199. HYDROXYCHLOROQUINE [Suspect]
     Active Substance: HYDROXYCHLOROQUINE
     Indication: Rheumatoid arthritis
     Route: 065
  200. HYDROXYCHLOROQUINE [Suspect]
     Active Substance: HYDROXYCHLOROQUINE
     Indication: Systemic lupus erythematosus
     Route: 065
  201. HYDROXYCHLOROQUINE [Suspect]
     Active Substance: HYDROXYCHLOROQUINE
     Route: 065
  202. KEVZARA [Suspect]
     Active Substance: SARILUMAB
     Indication: Rheumatoid arthritis
     Route: 065
  203. KEVZARA [Suspect]
     Active Substance: SARILUMAB
     Route: 065
  204. KEVZARA [Suspect]
     Active Substance: SARILUMAB
     Route: 065
  205. LAMOTRIGINE [Suspect]
     Active Substance: LAMOTRIGINE
     Route: 065
  206. LAMOTRIGINE [Suspect]
     Active Substance: LAMOTRIGINE
     Route: 048
  207. LAMOTRIGINE [Suspect]
     Active Substance: LAMOTRIGINE
     Route: 048
  208. LAMOTRIGINE [Suspect]
     Active Substance: LAMOTRIGINE
     Route: 048
  209. LAMOTRIGINE [Suspect]
     Active Substance: LAMOTRIGINE
     Route: 065
  210. LAMOTRIGINE [Suspect]
     Active Substance: LAMOTRIGINE
     Indication: Product used for unknown indication
     Route: 048
  211. LAMOTRIGINE [Suspect]
     Active Substance: LAMOTRIGINE
     Route: 048
  212. LAMOTRIGINE [Suspect]
     Active Substance: LAMOTRIGINE
     Route: 048
  213. LEFLUNOMIDE [Suspect]
     Active Substance: LEFLUNOMIDE
     Route: 065
  214. LEFLUNOMIDE [Suspect]
     Active Substance: LEFLUNOMIDE
     Route: 065
  215. LEFLUNOMIDE [Suspect]
     Active Substance: LEFLUNOMIDE
     Indication: Rheumatoid arthritis
     Route: 065
  216. LEFLUNOMIDE [Suspect]
     Active Substance: LEFLUNOMIDE
     Route: 065
  217. CLIOQUINOL\FLUMETHASONE [Suspect]
     Active Substance: CLIOQUINOL\FLUMETHASONE
     Indication: Rheumatoid arthritis
     Route: 065
  218. CLIOQUINOL\FLUMETHASONE [Suspect]
     Active Substance: CLIOQUINOL\FLUMETHASONE
     Route: 065
  219. CLIOQUINOL\FLUMETHASONE [Suspect]
     Active Substance: CLIOQUINOL\FLUMETHASONE
     Route: 065
  220. CLIOQUINOL\FLUMETHASONE [Suspect]
     Active Substance: CLIOQUINOL\FLUMETHASONE
     Route: 065
  221. LYRICA [Suspect]
     Active Substance: PREGABALIN
     Indication: Product used for unknown indication
     Route: 065
  222. LYRICA [Suspect]
     Active Substance: PREGABALIN
     Route: 065
  223. MESALAMINE [Suspect]
     Active Substance: MESALAMINE
     Indication: Crohn^s disease
     Route: 065
  224. MESALAMINE [Suspect]
     Active Substance: MESALAMINE
     Route: 065
  225. MESALAMINE [Suspect]
     Active Substance: MESALAMINE
     Route: 065
  226. METHOTREXATE [Suspect]
     Active Substance: METHOTREXATE
     Route: 065
  227. METHOTREXATE [Suspect]
     Active Substance: METHOTREXATE
     Route: 065
  228. METHOTREXATE [Suspect]
     Active Substance: METHOTREXATE
     Route: 065
  229. METHOTREXATE [Suspect]
     Active Substance: METHOTREXATE
     Route: 065
  230. METHOTREXATE [Suspect]
     Active Substance: METHOTREXATE
     Route: 048
  231. METHOTREXATE [Suspect]
     Active Substance: METHOTREXATE
     Indication: Rheumatoid arthritis
     Route: 065
  232. METHOTREXATE [Suspect]
     Active Substance: METHOTREXATE
     Route: 048
  233. METHOTREXATE [Suspect]
     Active Substance: METHOTREXATE
     Route: 065
  234. METHOTREXATE [Suspect]
     Active Substance: METHOTREXATE
     Route: 048
  235. METHOTREXATE [Suspect]
     Active Substance: METHOTREXATE
     Route: 048
  236. METHOTREXATE [Suspect]
     Active Substance: METHOTREXATE
     Indication: Product used for unknown indication
     Route: 016
  237. METHOTREXATE [Suspect]
     Active Substance: METHOTREXATE
     Route: 016
  238. METHOTREXATE [Suspect]
     Active Substance: METHOTREXATE
     Route: 048
  239. METHOTREXATE [Suspect]
     Active Substance: METHOTREXATE
     Route: 048
  240. METHOTREXATE [Suspect]
     Active Substance: METHOTREXATE
     Route: 058
  241. METHOTREXATE [Suspect]
     Active Substance: METHOTREXATE
     Route: 058
  242. METHOTREXATE SODIUM [Suspect]
     Active Substance: METHOTREXATE SODIUM
     Route: 065
  243. METHOTREXATE SODIUM [Suspect]
     Active Substance: METHOTREXATE SODIUM
     Route: 065
  244. METHOTREXATE SODIUM [Suspect]
     Active Substance: METHOTREXATE SODIUM
     Route: 048
  245. METHOTREXATE SODIUM [Suspect]
     Active Substance: METHOTREXATE SODIUM
     Route: 065
  246. METHOTREXATE SODIUM [Suspect]
     Active Substance: METHOTREXATE SODIUM
     Route: 048
  247. METHOTREXATE SODIUM [Suspect]
     Active Substance: METHOTREXATE SODIUM
     Indication: Rheumatoid arthritis
     Route: 016
  248. METHOTREXATE SODIUM [Suspect]
     Active Substance: METHOTREXATE SODIUM
     Route: 048
  249. METHOTREXATE SODIUM [Suspect]
     Active Substance: METHOTREXATE SODIUM
     Route: 058
  250. METHOTREXATE SODIUM [Suspect]
     Active Substance: METHOTREXATE SODIUM
     Route: 065
  251. METHOTREXATE SODIUM [Suspect]
     Active Substance: METHOTREXATE SODIUM
     Route: 065
  252. METHOTREXATE SODIUM [Suspect]
     Active Substance: METHOTREXATE SODIUM
     Route: 048
  253. METHOTREXATE SODIUM [Suspect]
     Active Substance: METHOTREXATE SODIUM
     Route: 048
  254. METHOTREXATE SODIUM [Suspect]
     Active Substance: METHOTREXATE SODIUM
     Indication: Rheumatoid arthritis
     Route: 016
  255. METHOTREXATE SODIUM [Suspect]
     Active Substance: METHOTREXATE SODIUM
     Route: 048
  256. METHOTREXATE SODIUM [Suspect]
     Active Substance: METHOTREXATE SODIUM
     Route: 058
  257. METHYLPREDNISOLONE SODIUM SUCCINATE [Suspect]
     Active Substance: METHYLPREDNISOLONE SODIUM SUCCINATE
     Indication: Product used for unknown indication
     Route: 065
  258. MINOCYCLINE [Suspect]
     Active Substance: MINOCYCLINE HYDROCHLORIDE
     Indication: Rheumatoid arthritis
     Route: 065
  259. MINOCYCLINE [Suspect]
     Active Substance: MINOCYCLINE HYDROCHLORIDE
     Route: 065
  260. MINOCYCLINE HYDROCHLORIDE [Suspect]
     Active Substance: MINOCYCLINE HYDROCHLORIDE
     Indication: Rheumatoid arthritis
     Route: 065
  261. MYCOPHENOLATE MOFETIL [Suspect]
     Active Substance: MYCOPHENOLATE MOFETIL
     Indication: Product used for unknown indication
     Route: 065
  262. MYCOPHENOLATE MOFETIL [Suspect]
     Active Substance: MYCOPHENOLATE MOFETIL
     Route: 065
  263. MYRBETRIQ [Suspect]
     Active Substance: MIRABEGRON
     Indication: Product used for unknown indication
     Route: 048
  264. MYRBETRIQ [Suspect]
     Active Substance: MIRABEGRON
     Route: 048
  265. NAPROXEN SODIUM [Suspect]
     Active Substance: NAPROXEN SODIUM
     Route: 065
  266. NAPROXEN SODIUM [Suspect]
     Active Substance: NAPROXEN SODIUM
     Indication: Rheumatoid arthritis
     Route: 065
  267. NAPROXEN SODIUM [Suspect]
     Active Substance: NAPROXEN SODIUM
     Route: 065
  268. NUCALA [Suspect]
     Active Substance: MEPOLIZUMAB
     Indication: Product used for unknown indication
     Route: 065
  269. NUCALA [Suspect]
     Active Substance: MEPOLIZUMAB
     Route: 065
  270. NUCALA [Suspect]
     Active Substance: MEPOLIZUMAB
     Route: 065
  271. ORENCIA [Suspect]
     Active Substance: ABATACEPT
     Route: 042
  272. ORENCIA [Suspect]
     Active Substance: ABATACEPT
     Route: 042
  273. ORENCIA [Suspect]
     Active Substance: ABATACEPT
     Indication: Rheumatoid arthritis
     Route: 058
  274. ORENCIA [Suspect]
     Active Substance: ABATACEPT
     Route: 058
  275. ORENCIA [Suspect]
     Active Substance: ABATACEPT
     Route: 058
  276. ORENCIA [Suspect]
     Active Substance: ABATACEPT
     Route: 042
  277. OTEZLA [Suspect]
     Active Substance: APREMILAST
     Indication: Product used for unknown indication
     Route: 065
  278. OTEZLA [Suspect]
     Active Substance: APREMILAST
     Route: 065
  279. OTEZLA [Suspect]
     Active Substance: APREMILAST
     Route: 048
  280. OTEZLA [Suspect]
     Active Substance: APREMILAST
     Route: 048
  281. OTEZLA [Suspect]
     Active Substance: APREMILAST
     Route: 065
  282. OTEZLA [Suspect]
     Active Substance: APREMILAST
     Route: 065
  283. OTEZLA [Suspect]
     Active Substance: APREMILAST
     Route: 048
  284. OTEZLA [Suspect]
     Active Substance: APREMILAST
     Route: 065
  285. OTEZLA [Suspect]
     Active Substance: APREMILAST
     Route: 065
  286. OTEZLA [Suspect]
     Active Substance: APREMILAST
     Route: 048
  287. OTEZLA [Suspect]
     Active Substance: APREMILAST
     Route: 048
  288. OTEZLA [Suspect]
     Active Substance: APREMILAST
     Route: 065
  289. OTEZLA [Suspect]
     Active Substance: APREMILAST
     Route: 065
  290. OXYCODONE [Suspect]
     Active Substance: OXYCODONE
     Indication: Product used for unknown indication
     Route: 065
  291. OXYCODONE [Suspect]
     Active Substance: OXYCODONE
     Route: 065
  292. OXYCODONE [Suspect]
     Active Substance: OXYCODONE
     Route: 065
  293. PANTOPRAZOLE [Suspect]
     Active Substance: PANTOPRAZOLE
     Route: 005
  294. PANTOPRAZOLE [Suspect]
     Active Substance: PANTOPRAZOLE
     Indication: Product used for unknown indication
     Route: 016
  295. PANTOPRAZOLE [Suspect]
     Active Substance: PANTOPRAZOLE
     Route: 016
  296. PANTOPRAZOLE [Suspect]
     Active Substance: PANTOPRAZOLE
     Route: 065
  297. PANTOPRAZOLE SODIUM [Suspect]
     Active Substance: PANTOPRAZOLE SODIUM
     Indication: Product used for unknown indication
     Route: 005
  298. PERCOCET [Suspect]
     Active Substance: ACETAMINOPHEN\OXYCODONE HYDROCHLORIDE
     Indication: Product used for unknown indication
     Route: 065
  299. PERCOCET [Suspect]
     Active Substance: ACETAMINOPHEN\OXYCODONE HYDROCHLORIDE
     Route: 065
  300. PERCOCET [Suspect]
     Active Substance: ACETAMINOPHEN\OXYCODONE HYDROCHLORIDE
     Route: 065
  301. PHENYLEPHRINE HYDROCHLORIDE [Suspect]
     Active Substance: PHENYLEPHRINE HYDROCHLORIDE
     Indication: Product used for unknown indication
     Route: 065
  302. PHENYLEPHRINE HYDROCHLORIDE [Suspect]
     Active Substance: PHENYLEPHRINE HYDROCHLORIDE
     Route: 065
  303. PHENYLEPHRINE HYDROCHLORIDE [Suspect]
     Active Substance: PHENYLEPHRINE HYDROCHLORIDE
     Route: 065
  304. PHTHALYLSULFATHIAZOLE [Suspect]
     Active Substance: PHTHALYLSULFATHIAZOLE
     Route: 065
  305. PHTHALYLSULFATHIAZOLE [Suspect]
     Active Substance: PHTHALYLSULFATHIAZOLE
     Route: 065
  306. PHTHALYLSULFATHIAZOLE [Suspect]
     Active Substance: PHTHALYLSULFATHIAZOLE
     Route: 065
  307. PHTHALYLSULFATHIAZOLE [Suspect]
     Active Substance: PHTHALYLSULFATHIAZOLE
     Indication: Rheumatoid arthritis
     Route: 065
  308. PHTHALYLSULFATHIAZOLE [Suspect]
     Active Substance: PHTHALYLSULFATHIAZOLE
     Route: 065
  309. PHTHALYLSULFATHIAZOLE [Suspect]
     Active Substance: PHTHALYLSULFATHIAZOLE
     Route: 065
  310. PHTHALYLSULFATHIAZOLE [Suspect]
     Active Substance: PHTHALYLSULFATHIAZOLE
     Route: 065
  311. PHTHALYLSULFATHIAZOLE [Suspect]
     Active Substance: PHTHALYLSULFATHIAZOLE
     Route: 065
  312. PHTHALYLSULFATHIAZOLE [Suspect]
     Active Substance: PHTHALYLSULFATHIAZOLE
     Route: 065
  313. PREDNISOLONE [Suspect]
     Active Substance: PREDNISOLONE
     Route: 048
  314. PREDNISOLONE [Suspect]
     Active Substance: PREDNISOLONE
     Route: 048
  315. PREDNISOLONE [Suspect]
     Active Substance: PREDNISOLONE
     Route: 048
  316. PREDNISOLONE [Suspect]
     Active Substance: PREDNISOLONE
     Indication: Product used for unknown indication
     Route: 065
  317. PREDNISONE [Suspect]
     Active Substance: PREDNISONE
     Route: 048
  318. PREDNISONE [Suspect]
     Active Substance: PREDNISONE
     Route: 048
  319. PREDNISONE [Suspect]
     Active Substance: PREDNISONE
     Route: 048
  320. PREDNISONE [Suspect]
     Active Substance: PREDNISONE
     Route: 048
  321. PREDNISONE [Suspect]
     Active Substance: PREDNISONE
     Route: 048
  322. PREDNISONE [Suspect]
     Active Substance: PREDNISONE
     Indication: Rheumatoid arthritis
     Route: 048
  323. PREDNISONE [Suspect]
     Active Substance: PREDNISONE
     Route: 048
  324. PREDNISONE [Suspect]
     Active Substance: PREDNISONE
     Route: 048
  325. PREDNISONE [Suspect]
     Active Substance: PREDNISONE
     Route: 065
  326. PREDNISONE [Suspect]
     Active Substance: PREDNISONE
     Route: 065
  327. PREDNISONE [Suspect]
     Active Substance: PREDNISONE
     Route: 065
  328. PREGABALIN [Suspect]
     Active Substance: PREGABALIN
     Indication: Product used for unknown indication
     Route: 065
  329. PREGABALIN [Suspect]
     Active Substance: PREGABALIN
     Indication: Product used for unknown indication
     Route: 065
  330. PSEUDOEPHEDRINE [Suspect]
     Active Substance: PSEUDOEPHEDRINE
     Indication: Rheumatoid arthritis
     Route: 065
  331. PSEUDOEPHEDRINE [Suspect]
     Active Substance: PSEUDOEPHEDRINE
     Route: 065
  332. PSEUDOEPHEDRINE [Suspect]
     Active Substance: PSEUDOEPHEDRINE
     Route: 065
  333. PSEUDOEPHEDRINE [Suspect]
     Active Substance: PSEUDOEPHEDRINE
     Route: 065
  334. PSEUDOEPHEDRINE [Suspect]
     Active Substance: PSEUDOEPHEDRINE
     Route: 065
  335. PSEUDOEPHEDRINE [Suspect]
     Active Substance: PSEUDOEPHEDRINE
     Route: 065
  336. PSEUDOEPHEDRINE [Suspect]
     Active Substance: PSEUDOEPHEDRINE
     Route: 065
  337. PSEUDOEPHEDRINE [Suspect]
     Active Substance: PSEUDOEPHEDRINE
     Route: 065
  338. PSEUDOEPHEDRINE [Suspect]
     Active Substance: PSEUDOEPHEDRINE
     Route: 065
  339. PSEUDOEPHEDRINE HYDROCHLORIDE [Suspect]
     Active Substance: PSEUDOEPHEDRINE HYDROCHLORIDE
     Indication: Rheumatoid arthritis
     Route: 065
  340. PSEUDOEPHEDRINE HYDROCHLORIDE [Suspect]
     Active Substance: PSEUDOEPHEDRINE HYDROCHLORIDE
     Route: 065
  341. PSEUDOEPHEDRINE HYDROCHLORIDE [Suspect]
     Active Substance: PSEUDOEPHEDRINE HYDROCHLORIDE
     Route: 065
  342. QUETIAPINE [Suspect]
     Active Substance: QUETIAPINE
     Indication: Medication error
     Route: 065
  343. QUETIAPINE [Suspect]
     Active Substance: QUETIAPINE
     Indication: Off label use
     Route: 065
  344. QUETIAPINE [Suspect]
     Active Substance: QUETIAPINE
     Route: 065
  345. QUETIAPINE FUMARATE [Suspect]
     Active Substance: QUETIAPINE FUMARATE
     Indication: Medication error
     Route: 065
  346. QUETIAPINE FUMARATE [Suspect]
     Active Substance: QUETIAPINE FUMARATE
     Indication: Off label use
     Route: 065
  347. RAMIPRIL [Suspect]
     Active Substance: RAMIPRIL
     Indication: Rheumatoid arthritis
     Route: 016
  348. RAMIPRIL [Suspect]
     Active Substance: RAMIPRIL
     Route: 016
  349. RAMIPRIL [Suspect]
     Active Substance: RAMIPRIL
     Route: 016
  350. RANITIDINE [Suspect]
     Active Substance: RANITIDINE
     Route: 058
  351. RANITIDINE [Suspect]
     Active Substance: RANITIDINE
     Route: 058
  352. RANITIDINE [Suspect]
     Active Substance: RANITIDINE
     Indication: Product used for unknown indication
     Route: 042
  353. RANITIDINE [Suspect]
     Active Substance: RANITIDINE
     Route: 042
  354. RANITIDINE HYDROCHLORIDE [Suspect]
     Active Substance: RANITIDINE HYDROCHLORIDE
     Route: 058
  355. RANITIDINE HYDROCHLORIDE [Suspect]
     Active Substance: RANITIDINE HYDROCHLORIDE
     Route: 058
  356. RANITIDINE HYDROCHLORIDE [Suspect]
     Active Substance: RANITIDINE HYDROCHLORIDE
     Indication: Product used for unknown indication
     Route: 040
  357. CETIRIZINE HYDROCHLORIDE\PSEUDOEPHEDRINE HYDROCHLORIDE [Suspect]
     Active Substance: CETIRIZINE HYDROCHLORIDE\PSEUDOEPHEDRINE HYDROCHLORIDE
     Indication: Rheumatoid arthritis
     Route: 065
  358. CETIRIZINE HYDROCHLORIDE\PSEUDOEPHEDRINE HYDROCHLORIDE [Suspect]
     Active Substance: CETIRIZINE HYDROCHLORIDE\PSEUDOEPHEDRINE HYDROCHLORIDE
     Route: 065
  359. CETIRIZINE HYDROCHLORIDE\PSEUDOEPHEDRINE HYDROCHLORIDE [Suspect]
     Active Substance: CETIRIZINE HYDROCHLORIDE\PSEUDOEPHEDRINE HYDROCHLORIDE
     Route: 065
  360. CETIRIZINE HYDROCHLORIDE\PSEUDOEPHEDRINE HYDROCHLORIDE [Suspect]
     Active Substance: CETIRIZINE HYDROCHLORIDE\PSEUDOEPHEDRINE HYDROCHLORIDE
     Route: 065
  361. CETIRIZINE HYDROCHLORIDE\PSEUDOEPHEDRINE HYDROCHLORIDE [Suspect]
     Active Substance: CETIRIZINE HYDROCHLORIDE\PSEUDOEPHEDRINE HYDROCHLORIDE
     Route: 065
  362. REMICADE [Suspect]
     Active Substance: INFLIXIMAB
     Route: 065
  363. REMICADE [Suspect]
     Active Substance: INFLIXIMAB
     Route: 065
  364. REMICADE [Suspect]
     Active Substance: INFLIXIMAB
     Route: 065
  365. REMICADE [Suspect]
     Active Substance: INFLIXIMAB
     Route: 065
  366. REMICADE [Suspect]
     Active Substance: INFLIXIMAB
     Route: 065
  367. REMICADE [Suspect]
     Active Substance: INFLIXIMAB
     Route: 065
  368. REMICADE [Suspect]
     Active Substance: INFLIXIMAB
     Route: 042
  369. REMICADE [Suspect]
     Active Substance: INFLIXIMAB
     Route: 042
  370. REMICADE [Suspect]
     Active Substance: INFLIXIMAB
     Route: 040
  371. REMICADE [Suspect]
     Active Substance: INFLIXIMAB
     Indication: Rheumatoid arthritis
     Route: 042
  372. REMICADE [Suspect]
     Active Substance: INFLIXIMAB
     Route: 042
  373. RITUXAN [Suspect]
     Active Substance: RITUXIMAB
     Indication: Rheumatoid arthritis
     Route: 058
  374. RITUXIMAB [Suspect]
     Active Substance: RITUXIMAB
     Indication: Rheumatoid arthritis
     Route: 042
  375. RITUXIMAB [Suspect]
     Active Substance: RITUXIMAB
     Route: 042
  376. RITUXIMAB [Suspect]
     Active Substance: RITUXIMAB
     Route: 058
  377. RITUXIMAB [Suspect]
     Active Substance: RITUXIMAB
     Route: 058
  378. RITUXIMAB [Suspect]
     Active Substance: RITUXIMAB
     Route: 065
  379. DIETARY SUPPLEMENT\HERBALS [Suspect]
     Active Substance: DIETARY SUPPLEMENT\HERBALS
     Indication: Product used for unknown indication
     Route: 048
  380. DIETARY SUPPLEMENT\HERBALS [Suspect]
     Active Substance: DIETARY SUPPLEMENT\HERBALS
     Route: 048
  381. DIETARY SUPPLEMENT\HERBALS [Suspect]
     Active Substance: DIETARY SUPPLEMENT\HERBALS
     Route: 048
  382. ATOMOXETINE HYDROCHLORIDE [Suspect]
     Active Substance: ATOMOXETINE HYDROCHLORIDE
     Indication: Product used for unknown indication
     Route: 065
  383. HYDROCORTISONE [Suspect]
     Active Substance: HYDROCORTISONE
     Indication: Product used for unknown indication
     Route: 048
  384. HYDROCORTISONE [Suspect]
     Active Substance: HYDROCORTISONE
     Route: 065
  385. HYDROCORTISONE [Suspect]
     Active Substance: HYDROCORTISONE
     Route: 048
  386. LEFLUNOMIDE [Suspect]
     Active Substance: LEFLUNOMIDE
     Route: 065
  387. LEFLUNOMIDE [Suspect]
     Active Substance: LEFLUNOMIDE
     Indication: Product used for unknown indication
     Route: 065
  388. MYCOPHENOLATE MOFETIL [Suspect]
     Active Substance: MYCOPHENOLATE MOFETIL
     Indication: Product used for unknown indication
     Route: 065
  389. TOPIRAMATE [Suspect]
     Active Substance: TOPIRAMATE
     Route: 065
  390. TOPIRAMATE [Suspect]
     Active Substance: TOPIRAMATE
     Indication: Product used for unknown indication
     Route: 065
  391. SIMPONI [Suspect]
     Active Substance: GOLIMUMAB
     Indication: Rheumatoid arthritis
     Route: 058
  392. SIMPONI [Suspect]
     Active Substance: GOLIMUMAB
     Route: 058
  393. SIMPONI [Suspect]
     Active Substance: GOLIMUMAB
     Route: 058
  394. SIMPONI [Suspect]
     Active Substance: GOLIMUMAB
     Route: 058
  395. SIMPONI [Suspect]
     Active Substance: GOLIMUMAB
     Route: 058
  396. SIMPONI [Suspect]
     Active Substance: GOLIMUMAB
     Route: 058
  397. SIMPONI [Suspect]
     Active Substance: GOLIMUMAB
     Route: 058
  398. SIRUKUMAB [Suspect]
     Active Substance: SIRUKUMAB
     Indication: Product used for unknown indication
     Route: 065
  399. SIRUKUMAB [Suspect]
     Active Substance: SIRUKUMAB
     Route: 065
  400. SIRUKUMAB [Suspect]
     Active Substance: SIRUKUMAB
     Route: 065
  401. SOLU-MEDROL [Suspect]
     Active Substance: METHYLPREDNISOLONE SODIUM SUCCINATE
     Indication: Product used for unknown indication
     Route: 048
  402. SULFASALAZINE [Suspect]
     Active Substance: SULFASALAZINE
     Route: 058
  403. SULFASALAZINE [Suspect]
     Active Substance: SULFASALAZINE
     Route: 058
  404. SULFASALAZINE [Suspect]
     Active Substance: SULFASALAZINE
     Route: 058
  405. SULFASALAZINE [Suspect]
     Active Substance: SULFASALAZINE
     Route: 048
  406. SULFASALAZINE [Suspect]
     Active Substance: SULFASALAZINE
     Indication: Rheumatoid arthritis
     Route: 065
  407. SULFASALAZINE [Suspect]
     Active Substance: SULFASALAZINE
     Route: 058
  408. SULFASALAZINE [Suspect]
     Active Substance: SULFASALAZINE
     Route: 058
  409. SULFASALAZINE [Suspect]
     Active Substance: SULFASALAZINE
     Route: 058
  410. SULFASALAZINE [Suspect]
     Active Substance: SULFASALAZINE
     Route: 058
  411. SULFASALAZINE [Suspect]
     Active Substance: SULFASALAZINE
     Route: 058
  412. SULFASALAZINE [Suspect]
     Active Substance: SULFASALAZINE
     Route: 058
  413. SULFASALAZINE [Suspect]
     Active Substance: SULFASALAZINE
     Route: 058
  414. SULFASALAZINE [Suspect]
     Active Substance: SULFASALAZINE
     Route: 048
  415. SULFASALAZINE [Suspect]
     Active Substance: SULFASALAZINE
     Route: 058
  416. SULFASALAZINE [Suspect]
     Active Substance: SULFASALAZINE
     Route: 058
  417. SULFASALAZINE [Suspect]
     Active Substance: SULFASALAZINE
     Route: 058
  418. TOFACITINIB [Suspect]
     Active Substance: TOFACITINIB
     Indication: Rheumatoid arthritis
     Route: 065
  419. TOFACITINIB [Suspect]
     Active Substance: TOFACITINIB
     Route: 065
  420. TOFACITINIB [Suspect]
     Active Substance: TOFACITINIB
     Route: 065
  421. TOPIRAMATE [Suspect]
     Active Substance: TOPIRAMATE
     Indication: Product used for unknown indication
     Route: 065
  422. TOPIRAMATE [Suspect]
     Active Substance: TOPIRAMATE
     Route: 065
  423. TOPIRAMATE [Suspect]
     Active Substance: TOPIRAMATE
     Route: 065
  424. TOPIRAMATE [Suspect]
     Active Substance: TOPIRAMATE
     Route: 065
  425. TRAZODONE [Suspect]
     Active Substance: TRAZODONE HYDROCHLORIDE
     Indication: Product used for unknown indication
     Route: 065
  426. TRAZODONE [Suspect]
     Active Substance: TRAZODONE HYDROCHLORIDE
     Route: 065
  427. TRAZODONE [Suspect]
     Active Substance: TRAZODONE HYDROCHLORIDE
     Route: 065
  428. TRETINOIN [Suspect]
     Active Substance: TRETINOIN
     Indication: Product used for unknown indication
     Route: 065
  429. TRETINOIN [Suspect]
     Active Substance: TRETINOIN
     Route: 065
  430. TRETINOIN [Suspect]
     Active Substance: TRETINOIN
     Route: 065
  431. USTEKINUMAB [Suspect]
     Active Substance: USTEKINUMAB
     Route: 058
  432. USTEKINUMAB [Suspect]
     Active Substance: USTEKINUMAB
     Route: 058
  433. USTEKINUMAB [Suspect]
     Active Substance: USTEKINUMAB
     Indication: Rheumatoid arthritis
     Route: 058
  434. USTEKINUMAB [Suspect]
     Active Substance: USTEKINUMAB
     Route: 058
  435. VITAMIN C [Suspect]
     Active Substance: ASCORBIC ACID
     Indication: Product used for unknown indication
     Route: 065
  436. VITAMIN C [Suspect]
     Active Substance: ASCORBIC ACID
     Route: 065
  437. VITAMIN C [Suspect]
     Active Substance: ASCORBIC ACID
     Route: 065
  438. VITAMIN B12 [Suspect]
     Active Substance: CYANOCOBALAMIN
     Indication: Product used for unknown indication
     Route: 065
  439. ATIVAN [Concomitant]
     Active Substance: LORAZEPAM
     Indication: Product used for unknown indication
     Route: 065
  440. ATIVAN [Concomitant]
     Active Substance: LORAZEPAM
     Route: 065
  441. ATIVAN [Concomitant]
     Active Substance: LORAZEPAM
     Route: 065
  442. CODEINE [Concomitant]
     Active Substance: CODEINE
     Indication: Product used for unknown indication
     Route: 065
  443. DESOGESTREL AND ETHINYL ESTRADIOL [Concomitant]
     Active Substance: DESOGESTREL\ETHINYL ESTRADIOL
     Indication: Product used for unknown indication
     Route: 065
  444. ICOSAPENT ETHYL [Concomitant]
     Active Substance: ICOSAPENT ETHYL
     Indication: Product used for unknown indication
     Route: 065
  445. ICOSAPENT ETHYL [Concomitant]
     Active Substance: ICOSAPENT ETHYL
     Route: 065
  446. DESOGESTREL\ETHINYL ESTRADIOL [Concomitant]
     Active Substance: DESOGESTREL\ETHINYL ESTRADIOL
     Indication: Product used for unknown indication
     Route: 065
  447. LORAZEPAM [Concomitant]
     Active Substance: LORAZEPAM
     Indication: Product used for unknown indication
     Route: 065
  448. LORAZEPAM [Concomitant]
     Active Substance: LORAZEPAM
     Route: 065
  449. LORAZEPAM [Concomitant]
     Active Substance: LORAZEPAM
     Route: 065
  450. VASCEPA [Concomitant]
     Active Substance: ICOSAPENT ETHYL
     Indication: Product used for unknown indication
     Route: 065
  451. ZESTRIL [Concomitant]
     Active Substance: LISINOPRIL
     Indication: Product used for unknown indication
     Route: 065
  452. ZESTRIL [Concomitant]
     Active Substance: LISINOPRIL
     Route: 065
  453. ZESTRIL [Concomitant]
     Active Substance: LISINOPRIL
     Route: 065

REACTIONS (4)
  - Off label use [Fatal]
  - Condition aggravated [Fatal]
  - Maternal exposure during pregnancy [Fatal]
  - Overlap syndrome [Fatal]
